FAERS Safety Report 23844389 (Version 2)
Quarter: 2024Q2

REPORT INFORMATION
  Report Type: Spontaneous
  Country: AU (occurrence: AU)
  Receive Date: 20240510
  Receipt Date: 20240516
  Transmission Date: 20240716
  Serious: No
  Sender: FDA-Public Use
  Company Number: AU-MLMSERVICE-20240501-PI046276-00224-1

PATIENT
  Age: 9 Year
  Sex: Female

DRUGS (5)
  1. MIDAZOLAM HYDROCHLORIDE [Suspect]
     Active Substance: MIDAZOLAM HYDROCHLORIDE
     Indication: Status epilepticus
     Dosage: INITIAL DOSE UNKNOWN
  2. MIDAZOLAM HYDROCHLORIDE [Suspect]
     Active Substance: MIDAZOLAM HYDROCHLORIDE
     Dosage: INCREASED UP TO A MAXIMUM OF 5MCG/KG/MIN
  3. CLOBAZAM [Suspect]
     Active Substance: CLOBAZAM
     Indication: Atonic seizures
     Dosage: UNK
  4. BRIVARACETAM [Concomitant]
     Active Substance: BRIVARACETAM
     Indication: Atonic seizures
     Dosage: UNK
  5. PHENYTOIN [Concomitant]
     Active Substance: PHENYTOIN
     Indication: Atonic seizures
     Dosage: UNK

REACTIONS (1)
  - Off label use [Unknown]
